FAERS Safety Report 4308525-4 (Version None)
Quarter: 2004Q1

REPORT INFORMATION
  Report Type: 
  Country: None (occurrence: None)
  Receive Date: 20040226
  Receipt Date: 20030728
  Transmission Date: 20041129
  Serious: Yes (Hospitalization)
  Sender: FDA-Public Use
  Company Number: 2003169916US

PATIENT
  Age: 41 Year
  Sex: Female

DRUGS (3)
  1. CELEBREX [Suspect]
     Indication: FASCIITIS
     Dosage: 200 MG, QD, ORAL
     Route: 048
  2. SYNTHROID [Concomitant]
  3. HORMONE REPLACEMENT PATCH [Concomitant]

REACTIONS (3)
  - CHEST PAIN [None]
  - PAIN IN EXTREMITY [None]
  - PAIN IN JAW [None]
